FAERS Safety Report 10868309 (Version 5)
Quarter: 2015Q2

REPORT INFORMATION
  Report Type: Spontaneous
  Country: US (occurrence: US)
  Receive Date: 20150225
  Receipt Date: 20150409
  Transmission Date: 20150821
  Serious: No
  Sender: FDA-Public Use
  Company Number: US-PFIZER INC-2015059881

PATIENT
  Age: 67 Year
  Sex: Female
  Weight: 58 kg

DRUGS (6)
  1. METHYLPREDNISOLONE. [Suspect]
     Active Substance: METHYLPREDNISOLONE
     Dosage: 4 MG, UNK
  2. FAMOTIDINE. [Suspect]
     Active Substance: FAMOTIDINE
     Dosage: 20 MG, UNK
  3. LANSOPRAZOLE. [Suspect]
     Active Substance: LANSOPRAZOLE
     Dosage: 30 MG, UNK
  4. CLARITHROMYCIN. [Suspect]
     Active Substance: CLARITHROMYCIN
     Dosage: 500 MG, UNK
  5. AMOXICILLIN. [Suspect]
     Active Substance: AMOXICILLIN
     Dosage: 500 MG, UNK
  6. PREPARATION H SUPPOSITORY [Suspect]
     Active Substance: COCOA BUTTER\PHENYLEPHRINE HYDROCHLORIDE
     Indication: HAEMORRHOIDS
     Dosage: UNK, 4X/DAY

REACTIONS (3)
  - Rash morbilliform [Recovered/Resolved]
  - Haemorrhoidal haemorrhage [Recovered/Resolved]
  - Hypersensitivity [Recovered/Resolved]
